FAERS Safety Report 5895834-0 (Version None)
Quarter: 2008Q3

REPORT INFORMATION
  Report Type: 
  Country: None (occurrence: None)
  Receive Date: 20080924
  Receipt Date: 20080915
  Transmission Date: 20090109
  Serious: Yes (Hospitalization)
  Sender: FDA-Public Use
  Company Number: US-JNJFOC-20080904122

PATIENT
  Sex: Female
  Weight: 90.72 kg

DRUGS (20)
  1. DURAGESIC-100 [Suspect]
     Indication: SPINAL COLUMN STENOSIS
     Dosage: INDICATION: SPINAL STENOSIS PAIN
     Route: 062
  2. PRESCRIPTION DRUGS [Suspect]
     Indication: DRUG USE FOR UNKNOWN INDICATION
     Route: 048
  3. VICODIN [Concomitant]
     Indication: PAIN
     Dosage: 5-500MG
     Route: 048
  4. HYDROCODONE BITARTRATE [Concomitant]
     Indication: PAIN
     Dosage: 200/7.5 MG
     Route: 048
  5. PROZAC [Concomitant]
     Indication: DEPRESSION
     Dosage: EVERY 4-6 HOURS
     Route: 048
  6. ZOLOFT [Concomitant]
     Indication: DEPRESSION
     Route: 048
  7. VALIUM [Concomitant]
     Indication: SLEEP DISORDER THERAPY
     Route: 048
  8. XANAX [Concomitant]
     Indication: ANXIETY
     Dosage: 1-5 TIMES A DAY
     Route: 048
  9. CELEBREX [Concomitant]
     Indication: DRUG USE FOR UNKNOWN INDICATION
     Route: 048
  10. MECLIZINE [Concomitant]
     Indication: DIZZINESS
     Route: 048
  11. CLARITIN [Concomitant]
     Indication: MULTIPLE ALLERGIES
     Route: 048
  12. LISINOPRIL [Concomitant]
     Indication: BLOOD PRESSURE
     Route: 048
  13. SYNTHROID [Concomitant]
     Indication: THYROID DISORDER
     Route: 048
  14. EXELON [Concomitant]
     Indication: MEMORY IMPAIRMENT
     Route: 048
  15. NEXIUM [Concomitant]
     Indication: GASTRIC DISORDER
     Route: 048
  16. NAMENDA [Concomitant]
     Indication: MEMORY IMPAIRMENT
     Route: 048
  17. DEPAKOTE [Concomitant]
     Indication: DEPRESSION
     Dosage: 2 TABLETS BEFORE SLEEP
     Route: 048
  18. NEURONTIN [Concomitant]
     Indication: PAIN
     Route: 048
  19. DETROL [Concomitant]
     Indication: HYPERTONIC BLADDER
     Route: 048
  20. MIRALAX [Concomitant]
     Indication: CONSTIPATION
     Dosage: 176/15 MG
     Route: 048

REACTIONS (2)
  - OVERDOSE [None]
  - SWELLING [None]
